FAERS Safety Report 10227001 (Version 3)
Quarter: 2014Q2

REPORT INFORMATION
  Report Type: Report from Study
  Country: CA (occurrence: CA)
  Receive Date: 20140610
  Receipt Date: 20140617
  Transmission Date: 20141212
  Serious: Yes (Hospitalization)
  Sender: FDA-Public Use
  Company Number: CA-ROCHE-1360778

PATIENT
  Age: 79 Year
  Sex: Female

DRUGS (16)
  1. VISMODEGIB [Suspect]
     Indication: ACUTE MYELOID LEUKAEMIA
     Dosage: DATE OF MOST RECENT DOSE PRIOR TO SAE ONSET: 22/FEB/2014?DOSE OF LAST VISMODEGIB ADMINISTERED- 150MG
     Route: 048
     Dates: start: 20140131
  2. VISMODEGIB [Suspect]
     Indication: MYELODYSPLASTIC SYNDROME
  3. ALLOPURINOL [Concomitant]
     Dosage: INDICATION:INCREASED URATE
     Route: 065
     Dates: start: 20130903, end: 20140312
  4. ATENOLOL [Concomitant]
     Indication: HYPERTENSION
     Route: 065
     Dates: start: 1980
  5. ATENOLOL [Concomitant]
     Route: 065
     Dates: start: 20140131, end: 20140207
  6. BISACODYL [Concomitant]
     Indication: CONSTIPATION
     Route: 065
     Dates: start: 20140117, end: 20140326
  7. HYDREA [Concomitant]
     Dosage: INDICATION:INCREASED WHITE COUNT
     Route: 065
     Dates: start: 20131115
  8. HYDROCHLOROTHIAZIDE [Concomitant]
     Indication: HYPERTENSION
     Route: 065
     Dates: start: 1980, end: 20140312
  9. SYNTHROID [Concomitant]
     Indication: AUTOIMMUNE THYROIDITIS
     Route: 065
     Dates: start: 1979, end: 20140330
  10. VALSARTAN [Concomitant]
     Indication: HYPERTENSION
     Route: 065
     Dates: start: 1981, end: 20140312
  11. MICRO-K [Concomitant]
     Indication: HYPOKALAEMIA
     Route: 065
     Dates: start: 20140203, end: 20140312
  12. NYSTATIN SUSPENSION [Concomitant]
     Indication: CANDIDA INFECTION
     Route: 065
     Dates: start: 20140219, end: 20140309
  13. CLAVULIN [Concomitant]
     Dosage: INFECTION- LIVER ABCESS
     Route: 065
     Dates: start: 20140224, end: 20140313
  14. CLAVULIN [Concomitant]
     Route: 065
     Dates: start: 20140207, end: 20140218
  15. NYSTATIN [Concomitant]
     Dosage: THRUSH PROPHYLAXIS
     Route: 065
     Dates: start: 20140313, end: 20140320
  16. ATORVASTATIN [Concomitant]
     Indication: HYPERLIPIDAEMIA
     Route: 065
     Dates: start: 1981, end: 20140312

REACTIONS (3)
  - Lung infection [Recovered/Resolved with Sequelae]
  - Liver abscess [Recovered/Resolved with Sequelae]
  - Hepatic infection [Recovered/Resolved with Sequelae]
